FAERS Safety Report 9301912 (Version 1)
Quarter: 2013Q2

REPORT INFORMATION
  Report Type: Spontaneous
  Country: US (occurrence: US)
  Receive Date: 20130521
  Receipt Date: 20130521
  Transmission Date: 20140414
  Serious: Yes (Other)
  Sender: FDA-Public Use
  Company Number: US-MYLANLABS-2013S1010491

PATIENT
  Sex: Male
  Weight: 108.86 kg

DRUGS (10)
  1. ALPRAZOLAM TABLETS, USP [Suspect]
     Indication: ANXIETY
     Route: 048
  2. ALPRAZOLAM TABLETS, USP [Suspect]
     Indication: STRESS
     Route: 048
  3. ZOLOFT [Suspect]
     Indication: DEPRESSION
  4. EFFEXOR [Suspect]
     Indication: DEPRESSION
  5. PROZAC [Suspect]
     Indication: DEPRESSION
  6. TOFRANIL [Suspect]
     Indication: DEPRESSION
  7. CELEXA [Suspect]
     Indication: DEPRESSION
  8. ACIPHEX [Concomitant]
     Indication: GASTROOESOPHAGEAL REFLUX DISEASE
     Route: 048
  9. CRESTOR [Concomitant]
     Indication: BLOOD CHOLESTEROL INCREASED
     Route: 048
  10. SYNTHROID [Concomitant]
     Indication: HYPOTHYROIDISM
     Route: 048

REACTIONS (4)
  - Drug ineffective [Recovered/Resolved]
  - Myocardial infarction [Recovered/Resolved]
  - Palpitations [Recovered/Resolved]
  - Anxiety [Recovered/Resolved]
